FAERS Safety Report 12238340 (Version 1)
Quarter: 2016Q2

REPORT INFORMATION
  Report Type: Spontaneous
  Country: US (occurrence: US)
  Receive Date: 20160405
  Receipt Date: 20160405
  Transmission Date: 20160815
  Serious: No
  Sender: FDA-Public Use
  Company Number: US-AMGEN-USASP2016040369

PATIENT
  Age: 60 Year
  Sex: Female

DRUGS (16)
  1. CINNAMON                           /01647501/ [Concomitant]
     Active Substance: CINNAMON
  2. NIACIN. [Concomitant]
     Active Substance: NIACIN
  3. ALENDRONATE [Concomitant]
     Active Substance: ALENDRONATE SODIUM
     Dosage: 70 MG, UNK
  4. ARAVA [Concomitant]
     Active Substance: LEFLUNOMIDE
     Dosage: 10 MG, UNK
  5. GARLIC                             /01570501/ [Concomitant]
     Active Substance: GARLIC
  6. OMEPRAZOLE. [Concomitant]
     Active Substance: OMEPRAZOLE
  7. PILOCARPINE. [Concomitant]
     Active Substance: PILOCARPINE
  8. NASACORT [Concomitant]
     Active Substance: TRIAMCINOLONE ACETONIDE
  9. ZINC OXIDE. [Concomitant]
     Active Substance: ZINC OXIDE
  10. ENBREL [Suspect]
     Active Substance: ETANERCEPT
     Indication: RHEUMATOID ARTHRITIS
     Dosage: 50 MG, QWK
     Route: 058
  11. MAGNESIUM [Concomitant]
     Active Substance: MAGNESIUM
  12. OMEGA 3 FISH OILS [Concomitant]
     Active Substance: OMEGA-3 FATTY ACIDS
  13. PREDNISONE. [Concomitant]
     Active Substance: PREDNISONE
     Dosage: 05 MG, UNK
  14. MELOXICAM. [Concomitant]
     Active Substance: MELOXICAM
     Dosage: 15 MG, UNK
  15. CALCIUM CARBONATE. [Concomitant]
     Active Substance: CALCIUM CARBONATE
  16. GINKGO                             /01003101/ [Concomitant]

REACTIONS (1)
  - Joint swelling [Unknown]

NARRATIVE: CASE EVENT DATE: 201512
